FAERS Safety Report 17802026 (Version 1)
Quarter: 2020Q2

REPORT INFORMATION
  Report Type: Spontaneous
  Country: US (occurrence: US)
  Receive Date: 20200515
  Receipt Date: 20200515
  Transmission Date: 20200714
  Serious: Yes (Life-Threatening, Hospitalization)
  Sender: FDA-Public Use
  Company Number: None

PATIENT
  Age: 20 Year
  Sex: Male
  Weight: 52.16 kg

DRUGS (1)
  1. WHITE MAENG DA HERBAL TEA KRATOM [Suspect]
     Active Substance: HERBALS\MITRAGYNINE
     Indication: OPIATES
     Route: 048
     Dates: start: 20181226, end: 20200513

REACTIONS (2)
  - Drug withdrawal syndrome [None]
  - Intentional self-injury [None]

NARRATIVE: CASE EVENT DATE: 20200513
